FAERS Safety Report 8593428-X (Version None)
Quarter: 2012Q3

REPORT INFORMATION
  Report Type: 
  Country: None (occurrence: None)
  Receive Date: 20120814
  Receipt Date: 20120709
  Transmission Date: 20120928
  Serious: Yes (Hospitalization, Other)
  Sender: FDA-Public Use
  Company Number: US-TEVA-347759USA

PATIENT
  Age: 68 Year
  Sex: Female
  Weight: 84 kg

DRUGS (28)
  1. OMEPRAZOLE [Concomitant]
  2. HYDROMORPHONE HYDROCHLORIDE [Concomitant]
     Dosage: 1.0MG TOWARDS THE END OF SURGERY; THEN 0.4MG POSTOPERATIVELY
  3. PAROXETINE HCL [Interacting]
  4. FENTANYL [Interacting]
     Indication: INDUCTION OF ANAESTHESIA
     Dosage: 100 MICROG; THEN 50 MICROG TOWARDS THE END OF SURGERY
     Route: 065
  5. MULTI-VITAMIN [Concomitant]
  6. BUPROPION HCL [Interacting]
  7. LISINOPRIL [Concomitant]
  8. TIAGABINE HYDROCHLORIDE [Concomitant]
  9. PROPOFOL [Concomitant]
     Indication: INDUCTION OF ANAESTHESIA
     Dosage: 200MG
  10. SUXAMETHONIUM CHLORIDE [Concomitant]
     Indication: INDUCTION OF ANAESTHESIA
     Dosage: 120MG
  11. LIPITOR [Concomitant]
  12. CLONAZEPAM [Concomitant]
  13. ONDANSETRON [Suspect]
     Indication: INDUCTION OF ANAESTHESIA
     Dosage: 4MG TOWARDS THE END OF SURGERY
  14. DULOXETINE HYDROCHLORIDE [Interacting]
  15. FENTANYL [Interacting]
     Indication: PAIN
     Dosage: 50 MICROG TOWARDS THE END OF SURGERY; THEN 100 MICROG POSTOPERATIVELY
     Route: 065
  16. DYAZIDE [Concomitant]
  17. ALENDRONATE SODIUM [Concomitant]
  18. NITROUS OXIDE [Concomitant]
     Indication: MAINTENANCE OF ANAESTHESIA
     Dosage: 50/50 NITROUS OXIDE/OXYGEN
  19. FENTANYL [Interacting]
     Dosage: 100 MICROG POSTOPERATIVELY
     Route: 065
  20. LEVOTHYROXINE SODIUM [Concomitant]
  21. OXYCODONE [Concomitant]
  22. SENNA ALEXANDRINA [Concomitant]
  23. CALCIUM [Concomitant]
  24. GABAPENTIN [Concomitant]
  25. FLUDROCORTISONE ACETATE [Concomitant]
  26. MIDAZOLAM [Concomitant]
     Indication: PREMEDICATION
  27. HYDROMORPHONE HYDROCHLORIDE [Concomitant]
     Dosage: 0.4MG POSTOPERATIVELY
     Route: 065
  28. DESFLURANE [Concomitant]
     Indication: MAINTENANCE OF ANAESTHESIA
     Dosage: 3.9-7.2% END-TIDAL DESFLURANE IN 50/50 NITROUS OXIDE/OXYGEN

REACTIONS (2)
  - SEROTONIN SYNDROME [None]
  - DRUG INTERACTION [None]
